FAERS Safety Report 8545996-1 (Version None)
Quarter: 2012Q3

REPORT INFORMATION
  Report Type: 
  Country: None (occurrence: None)
  Receive Date: 20120727
  Receipt Date: 20111129
  Transmission Date: 20120928
  Serious: No
  Sender: FDA-Public Use
  Company Number: US-ASTRAZENECA-2011SE72642

PATIENT
  Age: 44 Year
  Sex: Female
  Weight: 79.4 kg

DRUGS (15)
  1. SEROQUEL XR [Suspect]
     Route: 048
  2. SEROQUEL XR [Suspect]
     Route: 048
  3. SEROQUEL XR [Suspect]
     Route: 048
  4. SEROQUEL XR [Suspect]
     Route: 048
  5. SEROQUEL XR [Suspect]
     Indication: PANIC ATTACK
     Route: 048
  6. SEROQUEL XR [Suspect]
     Indication: SLEEP TERROR
     Route: 048
  7. SEROQUEL XR [Suspect]
     Route: 048
  8. SEROQUEL XR [Suspect]
     Indication: INSOMNIA
     Route: 048
  9. SEROQUEL XR [Suspect]
     Route: 048
  10. SEROQUEL XR [Suspect]
     Route: 048
  11. AMITRIPTYLINE HCL [Concomitant]
     Indication: INSOMNIA
  12. SEROQUEL XR [Suspect]
     Indication: NERVE INJURY
     Route: 048
  13. SEROQUEL XR [Suspect]
     Route: 048
  14. AMITRIPTYLINE HCL [Concomitant]
     Indication: PANIC ATTACK
  15. KLONOPIN [Concomitant]
     Indication: PANIC ATTACK

REACTIONS (8)
  - INSOMNIA [None]
  - DRUG DOSE OMISSION [None]
  - IRRITABILITY [None]
  - ANGER [None]
  - OFF LABEL USE [None]
  - PANIC ATTACK [None]
  - FATIGUE [None]
  - FEELING ABNORMAL [None]
